FAERS Safety Report 9227173 (Version 1)
Quarter: 2013Q2

REPORT INFORMATION
  Report Type: Spontaneous
  Country: US (occurrence: None)
  Receive Date: 20130411
  Receipt Date: 20130411
  Transmission Date: 20140414
  Serious: Yes (Life-Threatening, Disabling)
  Sender: FDA-Public Use
  Company Number: None

PATIENT
  Age: 21 Year
  Sex: Male
  Weight: 70.9 kg

DRUGS (2)
  1. RISPERDAL [Suspect]
     Indication: RENAL IMPAIRMENT
     Dates: start: 2006, end: 2008
  2. SEROQUEL [Suspect]

REACTIONS (5)
  - Hypoaesthesia [None]
  - Feeling abnormal [None]
  - Withdrawal syndrome [None]
  - Paraesthesia [None]
  - Dizziness [None]
